FAERS Safety Report 10923011 (Version 1)
Quarter: 2015Q1

REPORT INFORMATION
  Report Type: Spontaneous
  Country: CN (occurrence: CN)
  Receive Date: 20150317
  Receipt Date: 20150317
  Transmission Date: 20150721
  Serious: Yes (Hospitalization)
  Sender: FDA-Public Use
  Company Number: CN-BAXTER-2015BAX013305

PATIENT
  Sex: Female
  Weight: 75 kg

DRUGS (2)
  1. CEFOXITIN [Suspect]
     Active Substance: CEFOXITIN\CEFOXITIN SODIUM
     Indication: PELVIC INFLAMMATORY DISEASE
     Route: 041
     Dates: start: 20140701, end: 20140714
  2. METRONIDAZOLE INJECTION [Suspect]
     Active Substance: METRONIDAZOLE
     Indication: PELVIC INFLAMMATORY DISEASE
     Route: 041
     Dates: start: 20140701, end: 20140714

REACTIONS (2)
  - Abdominal pain [Unknown]
  - Diarrhoea [Recovering/Resolving]
